FAERS Safety Report 5839972-7 (Version None)
Quarter: 2008Q3

REPORT INFORMATION
  Report Type: 
  Country: None (occurrence: None)
  Receive Date: 20080807
  Receipt Date: 20080807
  Transmission Date: 20090109
  Serious: No
  Sender: FDA-Public Use
  Company Number: None

PATIENT
  Sex: Male
  Weight: 77.5651 kg

DRUGS (3)
  1. METOPROLOL SUCCINATE [Suspect]
     Indication: ARTERIOSCLEROSIS CORONARY ARTERY
     Dosage: 25MG  DAILY
     Dates: start: 20080501
  2. METOPROLOL SUCCINATE [Suspect]
     Indication: BLOOD CHOLESTEROL INCREASED
     Dosage: 25MG  DAILY
     Dates: start: 20080501
  3. METOPROLOL SUCCINATE [Suspect]
     Indication: HYPERTENSION
     Dosage: 25MG  DAILY
     Dates: start: 20080501

REACTIONS (3)
  - COUGH [None]
  - DYSPNOEA [None]
  - PALPITATIONS [None]
